FAERS Safety Report 10172732 (Version 3)
Quarter: 2014Q3

REPORT INFORMATION
  Report Type: Spontaneous
  Country: US (occurrence: None)
  Receive Date: 20140513
  Receipt Date: 20140714
  Transmission Date: 20150326
  Serious: Yes (Other)
  Sender: FDA-Public Use
  Company Number: 2014-US-003464

PATIENT
  Age: 53 Year
  Sex: Female
  Weight: 58.5 kg

DRUGS (5)
  1. AMRIX (CYCLOBENZAPRINE HYDROCHLORIDE) [Concomitant]
  2. XYREM [Suspect]
     Active Substance: SODIUM OXYBATE
     Indication: NARCOLEPSY
     Route: 048
     Dates: start: 200707
  3. XYREM [Suspect]
     Active Substance: SODIUM OXYBATE
     Indication: CATAPLEXY
     Route: 048
     Dates: start: 200707
  4. LISINOPRIL (LISINOPRIL) [Concomitant]
     Active Substance: LISINOPRIL
  5. XANAX [Concomitant]
     Active Substance: ALPRAZOLAM

REACTIONS (11)
  - Diarrhoea [None]
  - Inappropriate schedule of drug administration [None]
  - Nausea [None]
  - Overdose [None]
  - Somnolence [None]
  - Large intestine polyp [None]
  - Initial insomnia [None]
  - Hypertension [None]
  - Respiration abnormal [None]
  - Migraine [None]
  - Obsessive-compulsive disorder [None]

NARRATIVE: CASE EVENT DATE: 201310
